FAERS Safety Report 4629400-1 (Version None)
Quarter: 2005Q2

REPORT INFORMATION
  Report Type: 
  Country: None (occurrence: None)
  Receive Date: 20050405
  Receipt Date: 20050322
  Transmission Date: 20051028
  Serious: Yes (Hospitalization, Other)
  Sender: FDA-Public Use
  Company Number: 212040

PATIENT
  Age: 69 Year
  Sex: Male

DRUGS (6)
  1. MABTHERA (RITUXIMAB) CONC FOR SOLUTION FOR INFUSION [Suspect]
     Indication: CHRONIC LYMPHOCYTIC LEUKAEMIA
     Dosage: FLUDARABINE (FLUDARABINE)
     Dates: start: 20031215
  2. FLUDARABINE PHOSPHATE [Suspect]
     Indication: CHRONIC LYMPHOCYTIC LEUKAEMIA
     Dates: start: 20031215, end: 20040101
  3. CYCLOPHOSPHAMIDE [Concomitant]
     Indication: CHRONIC LYMPHOCYTIC LEUKAEMIA
     Dates: start: 20031215, end: 20040501
  4. NORVASC [Concomitant]
  5. DYTIDE (HYDROCHLOROTHIAZIDE, TRIAMTERENE) [Concomitant]
  6. NEUPOGEN [Concomitant]

REACTIONS (2)
  - EOSINOPHILIA [None]
  - TONGUE ULCERATION [None]
